FAERS Safety Report 25921398 (Version 1)
Quarter: 2025Q4

REPORT INFORMATION
  Report Type: Spontaneous
  Country: US (occurrence: US)
  Receive Date: 20251014
  Receipt Date: 20251014
  Transmission Date: 20260117
  Serious: No
  Sender: SANOFI AVENTIS
  Company Number: US-SA-2025SA304698

PATIENT
  Age: 14 Year
  Sex: Male
  Weight: 68.64 kg

DRUGS (8)
  1. DUPIXENT [Suspect]
     Active Substance: DUPILUMAB
     Dosage: 300 MG, QW
     Route: 058
  2. QVAR REDIHALER [Concomitant]
     Active Substance: BECLOMETHASONE DIPROPIONATE
  3. ALBUTEROL SULFATE [Concomitant]
     Active Substance: ALBUTEROL SULFATE
  4. IBUPROFEN [Concomitant]
     Active Substance: IBUPROFEN
  5. TYLENOL EXTRA STRENGTH [Concomitant]
     Active Substance: ACETAMINOPHEN
  6. MELATONIN [Concomitant]
     Active Substance: MELATONIN
  7. BENADRYL [Concomitant]
     Active Substance: DIPHENHYDRAMINE HYDROCHLORIDE
  8. ABILIFY [Concomitant]
     Active Substance: ARIPIPRAZOLE

REACTIONS (2)
  - Vomiting [Unknown]
  - Inappropriate schedule of product administration [Unknown]
